FAERS Safety Report 7030992-6 (Version None)
Quarter: 2010Q4

REPORT INFORMATION
  Report Type: 
  Country: None (occurrence: None)
  Receive Date: 20101006
  Receipt Date: 20100504
  Transmission Date: 20110411
  Serious: No
  Sender: FDA-Public Use
  Company Number: US-BRISTOL-MYERS SQUIBB COMPANY-15094501

PATIENT
  Sex: Female

DRUGS (1)
  1. KENALOG-40 [Suspect]
     Dosage: 1DF=1 INJECTION

REACTIONS (1)
  - ABDOMINAL PAIN [None]
